FAERS Safety Report 10078440 (Version 1)
Quarter: 2014Q2

REPORT INFORMATION
  Report Type: Report from Study
  Country: DE (occurrence: DE)
  Receive Date: 20140415
  Receipt Date: 20140415
  Transmission Date: 20141212
  Serious: Yes (Hospitalization)
  Sender: FDA-Public Use
  Company Number: DE-ROCHE-1381458

PATIENT
  Age: 75 Year
  Sex: Male

DRUGS (1)
  1. VEMURAFENIB [Suspect]
     Indication: METASTATIC MALIGNANT MELANOMA
     Dosage: DOSE OF LAST VEMURAFENIB PRESCRIBED 1920 MG.?DATE OF MOST RECENT DOSE OF VEMURAFENIB PRIOR TO AE ONS
     Route: 048
     Dates: start: 20140214

REACTIONS (1)
  - Infection [Recovered/Resolved]
